FAERS Safety Report 23675616 (Version 1)
Quarter: 2024Q1

REPORT INFORMATION
  Report Type: Spontaneous
  Country: IN (occurrence: IN)
  Receive Date: 20240327
  Receipt Date: 20240327
  Transmission Date: 20240410
  Serious: Yes (Death, Hospitalization, Other)
  Sender: FDA-Public Use
  Company Number: IN-AMGEN-INDSP2024058020

PATIENT

DRUGS (2)
  1. ROMIPLOSTIM [Suspect]
     Active Substance: ROMIPLOSTIM
     Indication: Aplastic anaemia
     Dosage: 5 MICROGRAM/KILOGRAM, QWK
     Route: 065
  2. ROMIPLOSTIM [Suspect]
     Active Substance: ROMIPLOSTIM
     Dosage: 10 MICROGRAM/KILOGRAM, QWK
     Route: 065

REACTIONS (10)
  - Haemorrhage intracranial [Fatal]
  - Sepsis [Fatal]
  - Cytopenia [Fatal]
  - Nephropathy toxic [Unknown]
  - Unevaluable event [Unknown]
  - Febrile neutropenia [Unknown]
  - Drug effective for unapproved indication [Unknown]
  - Hypertension [Unknown]
  - Serum sickness [Unknown]
  - Off label use [Unknown]
